FAERS Safety Report 12345191 (Version 2)
Quarter: 2016Q2

REPORT INFORMATION
  Report Type: Spontaneous
  Country: US (occurrence: US)
  Receive Date: 20160507
  Receipt Date: 20160630
  Transmission Date: 20160815
  Serious: No
  Sender: FDA-Public Use
  Company Number: US-JNJFOC-20160415072

PATIENT
  Sex: Female
  Weight: 95.26 kg

DRUGS (14)
  1. OXYBUTIN [Concomitant]
     Active Substance: OXYBUTYNIN
     Indication: BLADDER DISORDER
     Route: 065
  2. FUROSEMIDE. [Concomitant]
     Active Substance: FUROSEMIDE
     Indication: SWELLING
     Dosage: 40 MG OR 20 MG AS NEEDED
     Route: 065
  3. POTASSIUM [Concomitant]
     Active Substance: POTASSIUM
     Dosage: 10 MEQ AS NEEDED WITH FUROSEMIDE
     Route: 065
  4. VITAMIN B12 [Concomitant]
     Active Substance: CYANOCOBALAMIN
     Indication: ENERGY INCREASED
     Route: 065
  5. BIOTIN [Concomitant]
     Active Substance: BIOTIN
     Indication: HAIR DISORDER
     Route: 065
  6. IRBESARTAN. [Concomitant]
     Active Substance: IRBESARTAN
     Indication: HYPERTENSION
     Route: 065
     Dates: start: 2014
  7. METOPROLOL. [Concomitant]
     Active Substance: METOPROLOL
     Indication: BLOOD PRESSURE ABNORMAL
     Route: 065
     Dates: start: 2006
  8. METOPROLOL. [Concomitant]
     Active Substance: METOPROLOL
     Indication: ATRIAL FIBRILLATION
     Route: 065
     Dates: start: 2006
  9. METOPROLOL. [Concomitant]
     Active Substance: METOPROLOL
     Indication: HEART RATE
     Route: 065
     Dates: start: 2006
  10. AMLODIPINE [Concomitant]
     Active Substance: AMLODIPINE BESYLATE
     Indication: BLOOD PRESSURE ABNORMAL
     Route: 065
     Dates: start: 2016
  11. XARELTO [Suspect]
     Active Substance: RIVAROXABAN
     Indication: CEREBROVASCULAR ACCIDENT PROPHYLAXIS
     Route: 048
     Dates: start: 2016
  12. XARELTO [Suspect]
     Active Substance: RIVAROXABAN
     Indication: ATRIAL FIBRILLATION
     Route: 048
     Dates: start: 2016
  13. FUROSEMIDE. [Concomitant]
     Active Substance: FUROSEMIDE
     Indication: SWELLING
     Route: 065
  14. BIOTIN [Concomitant]
     Active Substance: BIOTIN
     Indication: NAIL DISORDER
     Route: 065

REACTIONS (4)
  - Rash [Recovering/Resolving]
  - Pruritus generalised [Not Recovered/Not Resolved]
  - Inappropriate schedule of drug administration [Recovered/Resolved]
  - Vulvovaginal pruritus [Not Recovered/Not Resolved]

NARRATIVE: CASE EVENT DATE: 2016
